FAERS Safety Report 26110984 (Version 1)
Quarter: 2025Q4

REPORT INFORMATION
  Report Type: Spontaneous
  Country: EU (occurrence: EU)
  Receive Date: 20251202
  Receipt Date: 20251202
  Transmission Date: 20260117
  Serious: Yes (Hospitalization, Disabling, Other)
  Sender: MICRO LABS LIMITED
  Company Number: EU-EMB-M202403710-1

PATIENT
  Sex: Male
  Weight: 3.77 kg

DRUGS (1)
  1. FLUOXETINE HYDROCHLORIDE [Suspect]
     Active Substance: FLUOXETINE HYDROCHLORIDE
     Indication: Obsessive-compulsive disorder
     Route: 064
     Dates: start: 202311, end: 202408

REACTIONS (8)
  - Gastrooesophageal reflux disease [Not Recovered/Not Resolved]
  - Motor developmental delay [Recovering/Resolving]
  - Cerebral palsy [Not Recovered/Not Resolved]
  - Hypertonia neonatal [Recovering/Resolving]
  - Respiratory disorder neonatal [Recovered/Resolved]
  - Foetal exposure during pregnancy [Unknown]
  - Adjustment disorder [Unknown]
  - Hypertonia [Unknown]

NARRATIVE: CASE EVENT DATE: 20240801
